FAERS Safety Report 24581135 (Version 1)
Quarter: 2024Q4

REPORT INFORMATION
  Report Type: Spontaneous
  Country: RO (occurrence: RO)
  Receive Date: 20241105
  Receipt Date: 20241105
  Transmission Date: 20250115
  Serious: Yes (Other)
  Sender: NOVARTIS
  Company Number: RO-002147023-NVSC2024RO212112

PATIENT
  Age: 79 Year
  Sex: Female

DRUGS (5)
  1. IMATINIB [Suspect]
     Active Substance: IMATINIB
     Indication: Chronic myeloid leukaemia
     Dosage: 400 MG, QD
     Route: 065
  2. NILOTINIB [Suspect]
     Active Substance: NILOTINIB
     Indication: Chronic myeloid leukaemia
     Dosage: 300 MG, BID
     Route: 065
  3. NILOTINIB [Suspect]
     Active Substance: NILOTINIB
     Dosage: 150 MG, BID
     Route: 065
  4. NILOTINIB [Suspect]
     Active Substance: NILOTINIB
     Dosage: 150 MG, QD
     Route: 065
  5. SCEMBLIX [Suspect]
     Active Substance: ASCIMINIB HYDROCHLORIDE
     Indication: Chronic myeloid leukaemia
     Dosage: 40 MG, BID
     Route: 065
     Dates: start: 202402

REACTIONS (7)
  - Polyneuropathy [Unknown]
  - Syncope [Unknown]
  - Leukopenia [Unknown]
  - Paraesthesia [Unknown]
  - Palpitations [Unknown]
  - Haemoglobin decreased [Unknown]
  - Hypotension [Unknown]
